FAERS Safety Report 4524893-2 (Version None)
Quarter: 2004Q4

REPORT INFORMATION
  Report Type: 
  Country: None (occurrence: None)
  Receive Date: 20041117
  Receipt Date: 20040423
  Transmission Date: 20050328
  Serious: Yes (Other)
  Sender: FDA-Public Use
  Company Number: 2004S1001215

PATIENT
  Age: 44 Year
  Sex: Male

DRUGS (5)
  1. CLOZAPINE [Suspect]
     Indication: SCHIZOAFFECTIVE DISORDER
     Dosage: 12.5MG, QD, THEN 37.5MG QD, THEN 50MG QD, THEN 75MG QD, ORAL
     Route: 048
     Dates: start: 20040115, end: 20040316
  2. CLONAZEPAM [Concomitant]
  3. OXCARBAZEPINE [Concomitant]
  4. MODAFINIL [Concomitant]
  5. ESCITALOPRAM [Concomitant]

REACTIONS (1)
  - LEUKOPENIA [None]
